FAERS Safety Report 4754254-2 (Version None)
Quarter: 2005Q3

REPORT INFORMATION
  Report Type: 
  Country: None (occurrence: None)
  Receive Date: 20050829
  Receipt Date: 20050817
  Transmission Date: 20060218
  Serious: Yes (Hospitalization)
  Sender: FDA-Public Use
  Company Number: US-JNJFOC-20050804966

PATIENT
  Sex: Female
  Weight: 58.97 kg

DRUGS (3)
  1. FENTANYL [Suspect]
     Route: 062
  2. LIPITOR [Concomitant]
  3. LIPITOR [Concomitant]

REACTIONS (1)
  - PNEUMONIA [None]
